FAERS Safety Report 19637804 (Version 7)
Quarter: 2024Q2

REPORT INFORMATION
  Report Type: Spontaneous
  Country: IN (occurrence: IN)
  Receive Date: 20210729
  Receipt Date: 20240402
  Transmission Date: 20240716
  Serious: Yes (Other)
  Sender: FDA-Public Use
  Company Number: IN-PFIZER INC-2021902836

PATIENT
  Age: 60 Year
  Sex: Male
  Weight: 82 kg

DRUGS (6)
  1. SUTENT [Suspect]
     Active Substance: SUNITINIB MALATE
     Indication: Metastatic renal cell carcinoma
     Dosage: 37.5 MG, 1X/DAY
     Route: 048
     Dates: start: 20210615, end: 202107
  2. SUTENT [Suspect]
     Active Substance: SUNITINIB MALATE
     Dosage: FOR 28 DAYS ON AND 14 DAYS OFF
     Route: 048
     Dates: start: 20210701
  3. ZOLEDRONIC ACID [Concomitant]
     Active Substance: ZOLEDRONIC ACID
  4. CALCIUM CARBONATE\CHOLECALCIFEROL [Concomitant]
     Active Substance: CALCIUM CARBONATE\CHOLECALCIFEROL
  5. METFORMIN HYDROCHLORIDE [Concomitant]
     Active Substance: METFORMIN HYDROCHLORIDE
     Dosage: UNK
     Dates: start: 20210701
  6. AMLODIPINE BESYLATE\PERINDOPRIL ERBUMINE [Concomitant]
     Active Substance: AMLODIPINE BESYLATE\PERINDOPRIL ERBUMINE
     Dosage: UNK
     Dates: start: 20210701

REACTIONS (11)
  - Second primary malignancy [Unknown]
  - Papillary thyroid cancer [Unknown]
  - Hepatic enzyme abnormal [Unknown]
  - Thyroglobulin increased [Unknown]
  - Tri-iodothyronine increased [Unknown]
  - Neoplasm progression [Unknown]
  - Blood thyroid stimulating hormone increased [Unknown]
  - Glycosylated haemoglobin increased [Unknown]
  - Liver function test abnormal [Unknown]
  - Abdominal discomfort [Not Recovered/Not Resolved]
  - Dry skin [Unknown]

NARRATIVE: CASE EVENT DATE: 20231201
